FAERS Safety Report 5460062-X (Version None)
Quarter: 2007Q3

REPORT INFORMATION
  Report Type: 
  Country: None (occurrence: None)
  Receive Date: 20070919
  Receipt Date: 20070508
  Transmission Date: 20080115
  Serious: No
  Sender: FDA-Public Use
  Company Number: US-ASTRAZENECA-2007UW10933

PATIENT
  Age: 29 Year
  Sex: Male

DRUGS (2)
  1. SEROQUEL [Suspect]
     Route: 048
     Dates: start: 20070426, end: 20070503
  2. AMBIEN [Concomitant]

REACTIONS (4)
  - DRY MOUTH [None]
  - PARAESTHESIA [None]
  - RESTLESS LEGS SYNDROME [None]
  - STOMATITIS [None]
